FAERS Safety Report 11445629 (Version 1)
Quarter: 2015Q3

REPORT INFORMATION
  Report Type: Spontaneous
  Country: US (occurrence: None)
  Receive Date: 20150827
  Receipt Date: 20150827
  Transmission Date: 20151125
  Serious: Yes (Other)
  Sender: FDA-Public Use
  Company Number: 2014-24919

PATIENT
  Sex: Male

DRUGS (1)
  1. LISINOPRIL (WATSON LABORATORIES) (LISINOPRIL) [Suspect]
     Active Substance: LISINOPRIL
     Indication: PRODUCT USED FOR UNKNOWN INDICATION

REACTIONS (2)
  - Hypersensitivity [None]
  - Swelling face [None]
